FAERS Safety Report 17157014 (Version 1)
Quarter: 2019Q4

REPORT INFORMATION
  Report Type: Spontaneous
  Country: IT (occurrence: IT)
  Receive Date: 20191216
  Receipt Date: 20191216
  Transmission Date: 20200122
  Serious: Yes (Hospitalization)
  Sender: FDA-Public Use
  Company Number: IT-ACCORD-165535

PATIENT
  Age: 91 Year
  Sex: Female

DRUGS (9)
  1. PANTOPRAZOLE [Concomitant]
     Active Substance: PANTOPRAZOLE
  2. TAPAZOLE [Concomitant]
     Active Substance: METHIMAZOLE
  3. DICLOFENAC [Concomitant]
     Active Substance: DICLOFENAC
  4. RYTMONORM [Concomitant]
     Active Substance: PROPAFENONE
  5. BISOPROLOL [Concomitant]
     Active Substance: BISOPROLOL
  6. CARDIOASPIRIN [Concomitant]
     Active Substance: ASPIRIN
  7. FUROSEMIDE. [Suspect]
     Active Substance: FUROSEMIDE
     Indication: HYPERTENSION
     Route: 048
     Dates: start: 20191013, end: 20191018
  8. LOSARTAN. [Suspect]
     Active Substance: LOSARTAN
     Indication: HYPERTENSION
     Route: 048
     Dates: start: 20190101, end: 20191018
  9. COLCHICINE. [Concomitant]
     Active Substance: COLCHICINE

REACTIONS (6)
  - Electrocardiogram QT prolonged [Unknown]
  - Hypotension [Unknown]
  - Malaise [Unknown]
  - Hyponatraemia [Unknown]
  - Headache [Unknown]
  - Hypokalaemia [Unknown]

NARRATIVE: CASE EVENT DATE: 20191018
